FAERS Safety Report 25876391 (Version 3)
Quarter: 2025Q4

REPORT INFORMATION
  Report Type: Report from Study
  Country: US (occurrence: US)
  Receive Date: 20251003
  Receipt Date: 20251107
  Transmission Date: 20260118
  Serious: Yes (Hospitalization, Other)
  Sender: MALLINCKRODT
  Company Number: US-MALLINCKRODT-MNK202505939

PATIENT
  Age: 72 Year
  Sex: Female

DRUGS (1)
  1. CORTICOTROPIN [Suspect]
     Active Substance: CORTICOTROPIN
     Indication: Rheumatoid arthritis
     Route: 058

REACTIONS (7)
  - Multiple sclerosis relapse [Not Recovered/Not Resolved]
  - Cataract [Unknown]
  - Psoriatic arthropathy [Not Recovered/Not Resolved]
  - Pruritus [Unknown]
  - Blood sodium decreased [Unknown]
  - Blood potassium abnormal [Not Recovered/Not Resolved]
  - Injection site bruising [Unknown]
